FAERS Safety Report 5255154-4 (Version None)
Quarter: 2007Q1

REPORT INFORMATION
  Report Type: 
  Country: None (occurrence: None)
  Receive Date: 20070228
  Receipt Date: 20070212
  Transmission Date: 20070707
  Serious: Yes (Hospitalization)
  Sender: FDA-Public Use
  Company Number: 2006EU003231

PATIENT
  Age: 60 Year
  Sex: Male
  Weight: 74 kg

DRUGS (10)
  1. PROGRAF [Suspect]
     Indication: RENAL TRANSPLANT
     Dosage: SEE IMAGE
     Route: 048
     Dates: start: 20010117
  2. PYOSTACINE(PRISTINAMYCIN) [Suspect]
     Dosage: 3 MG, ORAL
     Route: 048
     Dates: start: 20060824, end: 20060901
  3. VANCOMYCIN [Suspect]
     Dosage: 1 MGD, IV NOS
     Route: 042
     Dates: start: 20060821, end: 20060824
  4. IMODIUM [Suspect]
     Dosage: 2 MG/D, ORAL
     Route: 048
  5. TAZOCILLINE(PIPERACILLIN SODIUM, TAZOBACTAM SODIUM) [Suspect]
     Dosage: 12 G/D, IV NOS
     Route: 042
     Dates: start: 20060821, end: 20060824
  6. PANTOPRAZOLE SODIUM [Suspect]
     Dosage: 40 MG, ORAL
     Route: 048
  7. IMOVANE (ZOPICLONE) [Concomitant]
  8. SOLU-PRED (METHYLPREDNISOLONE) [Concomitant]
  9. CREON (LIPASE) [Concomitant]
  10. PAREGORIC (GLYCEROL, ETHANOL, PAPAVER SOMNIFERUM LATEX, ILLICIUM VERUM [Concomitant]

REACTIONS (5)
  - DEHYDRATION [None]
  - DRUG INTERACTION [None]
  - PATHOGEN RESISTANCE [None]
  - RENAL FAILURE ACUTE [None]
  - STAPHYLOCOCCAL SEPSIS [None]
